FAERS Safety Report 9252611 (Version 3)
Quarter: 2013Q3

REPORT INFORMATION
  Report Type: Spontaneous
  Country: US (occurrence: US)
  Receive Date: 20130424
  Receipt Date: 20130708
  Transmission Date: 20140515
  Serious: Yes (Hospitalization)
  Sender: FDA-Public Use
  Company Number: US-PFIZER INC-2013124642

PATIENT
  Age: 73 Year
  Sex: Female
  Weight: 62.59 kg

DRUGS (1)
  1. LEVOXYL [Suspect]
     Indication: HYPOTHYROIDISM
     Dosage: 112 UG (ONE TABLET), 1X/DAY
     Route: 048

REACTIONS (9)
  - Loss of consciousness [Unknown]
  - Syncope [Unknown]
  - Oral infection [Unknown]
  - Hormone level abnormal [Unknown]
  - Peripheral coldness [Unknown]
  - Dysphonia [Unknown]
  - Malaise [Unknown]
  - Feeling hot [Unknown]
  - Cold sweat [Unknown]
